FAERS Safety Report 7576878-X (Version None)
Quarter: 2011Q2

REPORT INFORMATION
  Report Type: 
  Country: None (occurrence: None)
  Receive Date: 20110628
  Receipt Date: 20110624
  Transmission Date: 20111010
  Serious: Yes (Other)
  Sender: FDA-Public Use
  Company Number: AU-JNJFOC-20110307638

PATIENT
  Sex: Male

DRUGS (4)
  1. STELARA [Suspect]
     Route: 058
     Dates: start: 20101130
  2. STELARA [Suspect]
     Indication: PSORIATIC ARTHROPATHY
     Route: 058
     Dates: start: 20110318
  3. STELARA [Suspect]
     Route: 058
     Dates: start: 20101102
  4. STELARA [Suspect]
     Route: 058
     Dates: start: 20110615

REACTIONS (2)
  - DEPRESSION [None]
  - CARDIOMYOPATHY [None]
